FAERS Safety Report 24042073 (Version 2)
Quarter: 2024Q3

REPORT INFORMATION
  Report Type: Spontaneous
  Country: US (occurrence: US)
  Receive Date: 20240702
  Receipt Date: 20240815
  Transmission Date: 20241016
  Serious: No
  Sender: NOVARTIS
  Company Number: US-002147023-NVSC2024US137072

PATIENT
  Sex: Male

DRUGS (1)
  1. COSENTYX [Suspect]
     Active Substance: SECUKINUMAB
     Indication: Product used for unknown indication
     Dosage: UNK, QW, (2MG/3M)
     Route: 065

REACTIONS (4)
  - Nausea [Unknown]
  - Abdominal discomfort [Unknown]
  - Constipation [Unknown]
  - Diarrhoea [Unknown]
